FAERS Safety Report 23685161 (Version 1)
Quarter: 2024Q1

REPORT INFORMATION
  Report Type: Spontaneous
  Country: US (occurrence: US)
  Receive Date: 20240329
  Receipt Date: 20240329
  Transmission Date: 20240409
  Serious: No
  Sender: FDA-Public Use
  Company Number: US-BRISTOL-MYERS SQUIBB COMPANY-2024-049141

PATIENT
  Age: 74 Year
  Sex: Female
  Weight: 68.49 kg

DRUGS (6)
  1. ELIQUIS [Suspect]
     Active Substance: APIXABAN
     Indication: Embolism venous
     Route: 048
     Dates: start: 202311, end: 20240110
  2. ELIQUIS [Suspect]
     Active Substance: APIXABAN
     Indication: Pulmonary embolism
  3. LOSARTAN [Concomitant]
     Active Substance: LOSARTAN
     Indication: Product used for unknown indication
     Dosage: HALF OF 25 MG TABLET
  4. ALLEGRA [Concomitant]
     Active Substance: FEXOFENADINE HYDROCHLORIDE
     Indication: Product used for unknown indication
  5. ZOFRAN [Concomitant]
     Active Substance: ONDANSETRON HYDROCHLORIDE
     Indication: Product used for unknown indication
     Dosage: ONE OR TWO A DAY
  6. MAGNESIUM [Concomitant]
     Active Substance: MAGNESIUM
     Indication: Product used for unknown indication
     Dosage: 64 , ONE A DAY

REACTIONS (8)
  - Arthritis [Unknown]
  - Pain in extremity [Unknown]
  - Back pain [Unknown]
  - Neck pain [Unknown]
  - Arthralgia [Unknown]
  - Alopecia [Unknown]
  - Weight decreased [Unknown]
  - Eye disorder [Unknown]

NARRATIVE: CASE EVENT DATE: 20231101
